FAERS Safety Report 6328767-6 (Version None)
Quarter: 2009Q3

REPORT INFORMATION
  Report Type: 
  Country: None (occurrence: None)
  Receive Date: 20090826
  Receipt Date: 20090820
  Transmission Date: 20100115
  Serious: Yes (Other)
  Sender: FDA-Public Use
  Company Number: US-SOLVAY-00209004708

PATIENT
  Age: 640 Month
  Sex: Male
  Weight: 124.5 kg

DRUGS (5)
  1. ANDROGEL [Suspect]
     Indication: DRUG USE FOR UNKNOWN INDICATION
     Dosage: DAILY DOSE:  UNKNOWN
     Route: 062
  2. SORAFENIB/PLACEBO [Suspect]
     Indication: RENAL CELL CARCINOMA
     Dosage: DAILY DOSE: 800 MILLIGRAM(S); TOTAL DOSE: 32800 MG
     Route: 048
     Dates: start: 20090413, end: 20090524
  3. SUNITINIB/PLACEBO [Suspect]
     Indication: RENAL CELL CARCINOMA
     Dosage: DAILY DOSE: 50 MILLIGRAM(S); TOTAL DOSE: 1400 MG
     Route: 048
     Dates: start: 20090413, end: 20090509
  4. ARICEPT [Suspect]
     Indication: DRUG USE FOR UNKNOWN INDICATION
     Dosage: DAILY DOSE:  UNKNOWN
     Route: 065
  5. PLAVIX [Suspect]
     Indication: DRUG USE FOR UNKNOWN INDICATION
     Dosage: DAILY DOSE:  UNKNOWN
     Route: 065

REACTIONS (3)
  - DEPRESSION [None]
  - PSYCHOTIC DISORDER [None]
  - SUICIDAL IDEATION [None]
